FAERS Safety Report 23234900 (Version 1)
Quarter: 2023Q4

REPORT INFORMATION
  Report Type: Spontaneous
  Country: KR (occurrence: KR)
  Receive Date: 20231128
  Receipt Date: 20231128
  Transmission Date: 20240110
  Serious: Yes (Other)
  Sender: FDA-Public Use
  Company Number: KR-TAKEDA-2023TUS113443

PATIENT
  Age: 69 Year
  Sex: Female

DRUGS (12)
  1. ADCETRIS [Suspect]
     Active Substance: BRENTUXIMAB VEDOTIN
     Indication: Angioimmunoblastic T-cell lymphoma
     Dosage: 1.8 MILLIGRAM/KILOGRAM
     Route: 065
     Dates: start: 20230330, end: 20230714
  2. CYCLOPHOSPHAMIDE [Suspect]
     Active Substance: CYCLOPHOSPHAMIDE
     Indication: Angioimmunoblastic T-cell lymphoma
     Dosage: 750 MILLIGRAM/SQ. METER
     Route: 065
     Dates: start: 20230330, end: 20230714
  3. DOXORUBICIN HYDROCHLORIDE [Suspect]
     Active Substance: DOXORUBICIN HYDROCHLORIDE
     Indication: Angioimmunoblastic T-cell lymphoma
     Dosage: 50 MILLIGRAM/SQ. METER
     Route: 065
     Dates: start: 20230330, end: 20230714
  4. PREDNISOLONE [Suspect]
     Active Substance: PREDNISOLONE
     Indication: Angioimmunoblastic T-cell lymphoma
     Dosage: 100 MILLIGRAM
     Route: 065
     Dates: start: 20230330, end: 20230714
  5. GRANULOCYTE COLONY-STIMULATING FACTOR NOS [Suspect]
     Active Substance: GRANULOCYTE COLONY-STIMULATING FACTOR NOS
     Indication: Angioimmunoblastic T-cell lymphoma
     Dosage: UNK
     Route: 065
  6. DULASTIN [Concomitant]
     Dosage: UNK
     Route: 065
     Dates: start: 20230330
  7. DULASTIN [Concomitant]
     Dosage: UNK
     Route: 065
     Dates: start: 20230420
  8. DULASTIN [Concomitant]
     Dosage: UNK
     Route: 065
     Dates: start: 20230513
  9. DULASTIN [Concomitant]
     Dosage: UNK
     Route: 065
     Dates: start: 20230602
  10. DULASTIN [Concomitant]
     Dosage: UNK
     Route: 065
     Dates: start: 20230623
  11. DULASTIN [Concomitant]
     Dosage: UNK
     Route: 065
     Dates: start: 20230714
  12. ZOLPIDEM [Concomitant]
     Active Substance: ZOLPIDEM TARTRATE
     Dosage: UNK
     Route: 065

REACTIONS (2)
  - COVID-19 pneumonia [Unknown]
  - Neuropathy peripheral [Unknown]

NARRATIVE: CASE EVENT DATE: 20230814
